FAERS Safety Report 8765944 (Version 1)
Quarter: 2012Q4

REPORT INFORMATION
  Report Type: 
  Country: IT (occurrence: IT)
  Receive Date: 20120904
  Receipt Date: 20120904
  Transmission Date: 20130627
  Serious: Yes (Hospitalization)
  Sender: FDA-Public Use
  Company Number: IT-WATSON-2012-15305

PATIENT
  Age: 50 Year
  Sex: Male

DRUGS (2)
  1. KETOPROFEN (UNKNOWN) [Suspect]
     Indication: NECK PAIN
     Dosage: 200 mg, daily
     Route: 065
  2. MINIRIN [Suspect]
     Indication: BLOOD ANTIDIURETIC HORMONE
     Dosage: 240 mcg, daily
     Route: 065

REACTIONS (2)
  - Hyponatraemia [Recovered/Resolved]
  - Water intoxication [Recovered/Resolved]
